FAERS Safety Report 20372288 (Version 2)
Quarter: 2022Q1

REPORT INFORMATION
  Report Type: Spontaneous
  Country: JP (occurrence: JP)
  Receive Date: 20220124
  Receipt Date: 20220221
  Transmission Date: 20220423
  Serious: Yes (Other)
  Sender: FDA-Public Use
  Company Number: JP-SAKK-2022SA018946AA

PATIENT
  Age: 34 Year
  Sex: Female

DRUGS (5)
  1. DUPIXENT [Suspect]
     Active Substance: DUPILUMAB
     Indication: Chronic eosinophilic rhinosinusitis
     Dosage: 300 MG, QOW
     Route: 058
     Dates: start: 20201209
  2. MONTELUKAST SODIUM [Concomitant]
     Active Substance: MONTELUKAST SODIUM
     Indication: Chronic eosinophilic rhinosinusitis
     Dosage: 10 MG, QD
     Route: 065
     Dates: start: 20180517, end: 20210217
  3. MONTELUKAST SODIUM [Concomitant]
     Active Substance: MONTELUKAST SODIUM
     Indication: Nasal polyps
  4. NASONEX [Concomitant]
     Active Substance: MOMETASONE FUROATE
     Indication: Chronic eosinophilic rhinosinusitis
     Dosage: 2 SPRAYS, QD
     Route: 045
     Dates: start: 20190603, end: 20210217
  5. NASONEX [Concomitant]
     Active Substance: MOMETASONE FUROATE
     Indication: Nasal polyps

REACTIONS (2)
  - Sarcoidosis [Unknown]
  - Somnolence [Unknown]

NARRATIVE: CASE EVENT DATE: 20201210
